FAERS Safety Report 11633688 (Version 1)
Quarter: 2015Q4

REPORT INFORMATION
  Report Type: Spontaneous
  Country: US (occurrence: None)
  Receive Date: 20151015
  Receipt Date: 20151015
  Transmission Date: 20160304
  Serious: No
  Sender: FDA-Public Use
  Company Number: US-MDT-ADR-2015-01961

PATIENT
  Age: 55 Year
  Sex: Female

DRUGS (2)
  1. BACLOFEN INTRATHECAL 400 MCG/ML [Suspect]
     Active Substance: BACLOFEN
     Indication: MUSCLE SPASTICITY
     Dosage: 204.26 MCG/DAY
  2. FENTANYL INTRATHECAL 2500 MCG/ML [Suspect]
     Active Substance: FENTANYL
     Dosage: 1276.6 MCG/DAY

REACTIONS (2)
  - Pain [None]
  - Fear [None]
